FAERS Safety Report 10495710 (Version 1)
Quarter: 2014Q4

REPORT INFORMATION
  Report Type: Other
  Country: DK (occurrence: DK)
  Receive Date: 20141003
  Receipt Date: 20141003
  Transmission Date: 20150528
  Serious: Yes (Other)
  Sender: FDA-Public Use
  Company Number: DK-MYLANLABS-2014M1005883

PATIENT

DRUGS (3)
  1. AROMASIN [Suspect]
     Active Substance: EXEMESTANE
     Indication: AROMATASE INHIBITION THERAPY
     Dosage: DOSIS: 1 TABLET 1 GANG DAGLIGT.
     Route: 048
     Dates: start: 201103, end: 201301
  2. FEMAR [Suspect]
     Active Substance: LETROZOLE
     Indication: AROMATASE INHIBITION THERAPY
     Dosage: UNK
     Dates: start: 201011, end: 201103
  3. TAMOXIFEN [Suspect]
     Active Substance: TAMOXIFEN
     Indication: AROMATASE INHIBITION THERAPY
     Dosage: UNK
     Dates: start: 201301, end: 201302

REACTIONS (7)
  - Fatigue [Not Recovered/Not Resolved]
  - Depressed mood [Not Recovered/Not Resolved]
  - Abdominal distension [Not Recovered/Not Resolved]
  - Arthralgia [Not Recovered/Not Resolved]
  - Alopecia [Not Recovered/Not Resolved]
  - Abdominal pain [Not Recovered/Not Resolved]
  - Nausea [Not Recovered/Not Resolved]

NARRATIVE: CASE EVENT DATE: 201011
